FAERS Safety Report 24412750 (Version 6)
Quarter: 2025Q3

REPORT INFORMATION
  Report Type: Report from Study
  Country: CN (occurrence: CN)
  Receive Date: 20241008
  Receipt Date: 20250722
  Transmission Date: 20251020
  Serious: Yes (Hospitalization, Other)
  Sender: ELI LILLY AND COMPANY
  Company Number: CN-ELI_LILLY_AND_COMPANY-CN202310011780

PATIENT
  Age: 58 Year
  Sex: Female

DRUGS (3)
  1. RETEVMO [Suspect]
     Active Substance: SELPERCATINIB
     Indication: Lung neoplasm malignant
     Dosage: 160 MG, BID
     Route: 048
     Dates: start: 20230414
  2. METFORMIN [Concomitant]
     Active Substance: METFORMIN HYDROCHLORIDE
     Indication: Blood glucose increased
  3. SITAGLIPTIN PHOSPHATE [Concomitant]
     Active Substance: SITAGLIPTIN PHOSPHATE
     Indication: Blood glucose increased

REACTIONS (18)
  - Yellow skin [Unknown]
  - Jaundice [Unknown]
  - White blood cell count decreased [Unknown]
  - Splenomegaly [Unknown]
  - Renal cyst [Unknown]
  - Chronic kidney disease [Unknown]
  - Thyroid mass [Unknown]
  - Carotid arteriosclerosis [Unknown]
  - Haemangioma of liver [Unknown]
  - Blood alkaline phosphatase decreased [Unknown]
  - Blood phosphorus increased [Unknown]
  - Antithrombin III decreased [Unknown]
  - Eosinophil count decreased [Unknown]
  - C-reactive protein increased [Unknown]
  - Beta 2 microglobulin increased [Unknown]
  - Blood magnesium decreased [Unknown]
  - Blood bilirubin increased [Unknown]
  - Blood creatinine increased [Unknown]
